FAERS Safety Report 5389941-9 (Version None)
Quarter: 2007Q3

REPORT INFORMATION
  Report Type: 
  Country: None (occurrence: None)
  Receive Date: 20070716
  Receipt Date: 20070716
  Transmission Date: 20080115
  Serious: Yes (Life-Threatening)
  Sender: FDA-Public Use
  Company Number: None

PATIENT
  Sex: Male
  Weight: 67.586 kg

DRUGS (2)
  1. HUMIRA [Suspect]
     Indication: COLITIS ULCERATIVE
     Dosage: 40MG Q O WEEK SQ
     Route: 058
     Dates: start: 20061122, end: 20070615
  2. REMICADE [Suspect]
     Indication: COLITIS ULCERATIVE
     Dosage: 350MG VARIABLE IV DRIP
     Route: 041

REACTIONS (1)
  - HEPATOSPLENIC T-CELL LYMPHOMA [None]
